FAERS Safety Report 4831668-3 (Version None)
Quarter: 2005Q4

REPORT INFORMATION
  Report Type: 
  Country: None (occurrence: None)
  Receive Date: 20051116
  Receipt Date: 20051109
  Transmission Date: 20060501
  Serious: Yes (Other)
  Sender: FDA-Public Use
  Company Number: 200513291BCC

PATIENT
  Age: 51 Year
  Sex: Male
  Weight: 180 kg

DRUGS (5)
  1. ASPIRIN [Suspect]
     Indication: CARDIAC DISORDER
     Dosage: 325 MG, QD, ORAL
     Route: 048
     Dates: start: 19800101
  2. ASPIRIN [Suspect]
     Indication: PROPHYLAXIS
     Dosage: 325 MG, QD, ORAL
     Route: 048
     Dates: start: 19800101
  3. ZOCOR [Concomitant]
  4. PLAVIX [Concomitant]
  5. ATENOLOL [Concomitant]

REACTIONS (3)
  - HYPERHIDROSIS [None]
  - MYOCARDIAL INFARCTION [None]
  - PAIN IN EXTREMITY [None]
